FAERS Safety Report 10606584 (Version 2)
Quarter: 2014Q4

REPORT INFORMATION
  Report Type: Spontaneous
  Country: DE (occurrence: None)
  Receive Date: 20141121
  Receipt Date: 20141210
  Transmission Date: 20150529
  Serious: Yes (Hospitalization)
  Sender: FDA-Public Use
  Company Number: 201402IM005171

PATIENT
  Age: 81 Year
  Sex: Male
  Weight: 82 kg

DRUGS (7)
  1. ESBRIET [Suspect]
     Active Substance: PIRFENIDONE
     Indication: IDIOPATHIC PULMONARY FIBROSIS
     Route: 048
     Dates: start: 20131119
  2. SIMVASTATIN. [Concomitant]
     Active Substance: SIMVASTATIN
  3. BISOPROLOL [Concomitant]
     Active Substance: BISOPROLOL
  4. BERODUAL [Concomitant]
     Active Substance: FENOTEROL HYDROBROMIDE\IPRATROPIUM BROMIDE
  5. FOLSAN [Concomitant]
     Active Substance: FOLIC ACID
  6. CLOPIDOGREL [Concomitant]
     Active Substance: CLOPIDOGREL BISULFATE
  7. OXYGEN. [Concomitant]
     Active Substance: OXYGEN

REACTIONS (9)
  - Pruritus [None]
  - Decreased appetite [None]
  - Photosensitivity reaction [None]
  - Blister [None]
  - Tenderness [None]
  - Erythema [None]
  - Rash [None]
  - Eczema [None]
  - Malaise [None]

NARRATIVE: CASE EVENT DATE: 20131201
